FAERS Safety Report 19755058 (Version 1)
Quarter: 2021Q3

REPORT INFORMATION
  Report Type: Spontaneous
  Country: US (occurrence: US)
  Receive Date: 20210824
  Receipt Date: 20210824
  Transmission Date: 20211014
  Serious: Yes (Death, Hospitalization)
  Sender: FDA-Public Use
  Company Number: None

PATIENT
  Age: 76 Year
  Sex: Female
  Weight: 75.5 kg

DRUGS (1)
  1. TAXOL [Suspect]
     Active Substance: PACLITAXEL
     Dates: end: 20210804

REACTIONS (13)
  - Ascites [None]
  - Abdominal pain [None]
  - Nausea [None]
  - Cerebrovascular accident [None]
  - Gram stain positive [None]
  - Abdominal pain upper [None]
  - Pleural effusion [None]
  - Hypoxia [None]
  - Facial paresis [None]
  - Blood culture positive [None]
  - Anal incontinence [None]
  - Urinary incontinence [None]
  - Vomiting [None]

NARRATIVE: CASE EVENT DATE: 20210816
